FAERS Safety Report 4422890-9 (Version None)
Quarter: 2004Q3

REPORT INFORMATION
  Report Type: 
  Country: None (occurrence: None)
  Receive Date: 20040811
  Receipt Date: 20040802
  Transmission Date: 20050211
  Serious: Yes (Death, Hospitalization, Other)
  Sender: FDA-Public Use
  Company Number: US-JNJFOC-20031204573

PATIENT
  Sex: Female
  Weight: 52.62 kg

DRUGS (48)
  1. DURAGESIC [Suspect]
     Route: 062
     Dates: start: 20010910, end: 20010930
  2. EFFEXOR XR [Suspect]
     Route: 049
     Dates: start: 20010910
  3. EFFEXOR XR [Suspect]
     Route: 049
     Dates: start: 20010910
  4. EFFEXOR XR [Suspect]
     Route: 049
     Dates: start: 20010910
  5. EFFEXOR XR [Suspect]
     Route: 049
     Dates: start: 20010910
  6. EFFEXOR XR [Suspect]
     Indication: DEPRESSION
     Route: 049
     Dates: start: 20010910
  7. XANAX [Suspect]
     Dates: start: 20010901
  8. XANAX [Suspect]
     Dates: start: 20010901
  9. XANAX [Suspect]
     Dates: start: 20010901
  10. XANAX [Suspect]
     Dates: start: 20010901
  11. XANAX [Suspect]
     Indication: ANXIETY
     Dates: start: 20010901
  12. AMBIEN [Suspect]
     Indication: INSOMNIA
     Dosage: AS NEEDED
     Dates: start: 20010901, end: 20010924
  13. PHENERGAN [Suspect]
     Indication: NAUSEA
     Dosage: AS NEEDED
     Dates: start: 20010913
  14. HUMALOG MIX 75/25 [Suspect]
     Dosage: 18 UNITS IN AM AND 16 UNITS IN PM
     Route: 058
     Dates: start: 20010914
  15. HUMALOG MIX 75/25 [Suspect]
     Dosage: 18 UNITS IN AM AND 18 UNITS IN PM
     Route: 058
     Dates: start: 20010914
  16. HUMALOG MIX 75/25 [Suspect]
     Dosage: 22 UNITS AM AND 22 UNITS PM
     Route: 058
     Dates: start: 20010914
  17. HUMALOG MIX 75/25 [Suspect]
     Dosage: 22 UNITS IN AM AND 18 UNITS IN PM
     Route: 058
     Dates: start: 20010914
  18. HUMALOG MIX 75/25 [Suspect]
     Dosage: 18 UNITS IN AM AND 16 UNITS IN PM
     Route: 058
     Dates: start: 20010914
  19. HUMALOG MIX 75/25 [Suspect]
     Dosage: 16 UNITS IN AM AND 12 UNITS IN PM
     Route: 058
     Dates: start: 20010914
  20. HUMULIN 70/30 [Concomitant]
  21. HUMULIN 70/30 [Concomitant]
     Dosage: 20 UNITS IN THE AM AND 15 UNITS AT 1700 WITH GLUCOSCANS BEFORE MEALS AND AT BEDTIME
  22. NEURONTIN [Concomitant]
     Dosage: 400 MG BID AND 600 MG AT BEDTIME
  23. NEURONTIN [Concomitant]
     Indication: DIABETIC NEUROPATHY
  24. ZYPREXA [Concomitant]
     Dates: end: 20010917
  25. ZYPREXA [Concomitant]
     Dates: end: 20010917
  26. LIPITOR [Concomitant]
  27. PREMARIN [Concomitant]
  28. DOXEPIN HCL [Concomitant]
     Indication: DRUG USE FOR UNKNOWN INDICATION
  29. CIPRO [Concomitant]
     Route: 049
  30. CIPRO [Concomitant]
     Indication: DRUG USE FOR UNKNOWN INDICATION
     Route: 049
  31. PROZAC [Concomitant]
     Indication: DEPRESSION
     Route: 049
  32. RITALIN [Concomitant]
  33. RITALIN [Concomitant]
     Indication: LETHARGY
  34. RITALIN [Concomitant]
  35. CLARITIN [Concomitant]
     Dates: start: 20010901, end: 20010929
  36. SYNTHROID [Concomitant]
  37. REMERON [Concomitant]
     Dates: start: 20010910, end: 20010927
  38. REMERON [Concomitant]
     Dates: start: 20010910, end: 20010927
  39. REMERON [Concomitant]
     Dates: start: 20010910, end: 20010927
  40. REGLAN [Concomitant]
     Indication: NAUSEA
     Dates: start: 20010901
  41. BACTRIM DS [Concomitant]
  42. BACTRIM DS [Concomitant]
     Indication: URINARY TRACT INFECTION
  43. DIFLUCAN [Concomitant]
  44. DIFLUCAN [Concomitant]
  45. WELLBUTRIN SR [Concomitant]
  46. WELLBUTRIN SR [Concomitant]
  47. CIPRO OPHTHALMIC DROPS [Concomitant]
     Indication: CORNEAL ABRASION
     Route: 047
     Dates: start: 20010928
  48. MICRO-K [Concomitant]

REACTIONS (34)
  - ANXIETY [None]
  - APATHY [None]
  - ASPIRATION [None]
  - BACTERIA URINE [None]
  - BLOOD GLUCOSE FLUCTUATION [None]
  - BLOOD PH DECREASED [None]
  - BODY TEMPERATURE DECREASED [None]
  - CANDIDURIA [None]
  - CARDIO-RESPIRATORY ARREST [None]
  - COLD SWEAT [None]
  - COMA [None]
  - CONVULSION [None]
  - CORNEAL ABRASION [None]
  - DEPRESSION [None]
  - DIABETIC EYE DISEASE [None]
  - DISTURBANCE IN ATTENTION [None]
  - DRUG INEFFECTIVE [None]
  - DRUG TOXICITY [None]
  - EATING DISORDER [None]
  - EYE PAIN [None]
  - FATIGUE [None]
  - HEART RATE INCREASED [None]
  - HYPERHIDROSIS [None]
  - HYPERSENSITIVITY [None]
  - HYPOGLYCAEMIA [None]
  - LETHARGY [None]
  - MARKEDLY REDUCED DIETARY INTAKE [None]
  - MULTIPLE DRUG OVERDOSE [None]
  - NAUSEA [None]
  - NEUROPATHY [None]
  - PANIC ATTACK [None]
  - RESPIRATORY RATE DECREASED [None]
  - SEDATION [None]
  - SOMNOLENCE [None]
